FAERS Safety Report 8460202 (Version 2)
Quarter: 2012Q4

REPORT INFORMATION
  Report Type: Spontaneous
  Country: GB (occurrence: None)
  Receive Date: 20120308
  Receipt Date: 20120823
  Transmission Date: 20130627
  Serious: Yes (Death, Hospitalization)
  Sender: FDA-Public Use
  Company Number: 2012AP000559

PATIENT
  Age: 63 Year
  Sex: Female

DRUGS (6)
  1. LEFLUNOMIDE [Suspect]
     Indication: RHEUMATOID ARTHRITIS
     Dosage: 20 MG;  ; PO; QD
     Route: 048
     Dates: start: 20110901, end: 20111212
  2. BECOTIDE (BECLOMETASON DIPROPIONATE) [Concomitant]
  3. LANSOPRAZOLE [Concomitant]
  4. LOPERAMIDE HYDROCHLORIDE [Concomitant]
  5. METHOTREXATE [Concomitant]
  6. SULFASALAZINE [Concomitant]

REACTIONS (10)
  - BACTERIAL INFECTION [None]
  - CONDITION AGGRAVATED [None]
  - LUNG DISORDER [None]
  - PULMONARY FIBROSIS [None]
  - PNEUMOCYSTIS JIROVECI PNEUMONIA [None]
  - PULMONARY EMBOLISM [None]
  - RESPIRATORY TRACT INFECTION [None]
  - DYSPNOEA [None]
  - GENERAL PHYSICAL HEALTH DETERIORATION [None]
  - RESPIRATORY FAILURE [None]
